FAERS Safety Report 16810006 (Version 1)
Quarter: 2019Q3

REPORT INFORMATION
  Report Type: Spontaneous
  Country: GB (occurrence: FR)
  Receive Date: 20190916
  Receipt Date: 20190916
  Transmission Date: 20191005
  Serious: Yes (Life-Threatening, Hospitalization)
  Sender: FDA-Public Use
  Company Number: FR-BAYER-2019-132861

PATIENT
  Age: 72 Year
  Sex: Male
  Weight: 85 kg

DRUGS (2)
  1. CIPROFLOXACIN. [Suspect]
     Active Substance: CIPROFLOXACIN
     Indication: ARTERIAL THERAPEUTIC PROCEDURE
     Dosage: 1000 MG, QD
     Route: 048
     Dates: start: 20190529, end: 20190618
  2. AUGMENTIN [Suspect]
     Active Substance: AMOXICILLIN\CLAVULANATE POTASSIUM
     Indication: ARTERIAL THERAPEUTIC PROCEDURE
     Dosage: 3 G, QD
     Route: 048
     Dates: start: 20190529, end: 20190618

REACTIONS (1)
  - Thrombocytopenia [Recovered/Resolved]

NARRATIVE: CASE EVENT DATE: 20190618
